FAERS Safety Report 7399147-X (Version None)
Quarter: 2011Q1

REPORT INFORMATION
  Report Type: 
  Country: None (occurrence: None)
  Receive Date: 20110328
  Receipt Date: 20110316
  Transmission Date: 20110831
  Serious: Yes (Life-Threatening, Other)
  Sender: FDA-Public Use
  Company Number: 025927

PATIENT
  Sex: Male
  Weight: 70 kg

DRUGS (1)
  1. KEPPRA [Suspect]
     Indication: EPILEPSY
     Dosage: 1000 MG BID ORAL
     Route: 048
     Dates: start: 20101001, end: 20110101

REACTIONS (3)
  - SUICIDAL IDEATION [None]
  - AGGRESSION [None]
  - RESTLESSNESS [None]
